FAERS Safety Report 14540134 (Version 2)
Quarter: 2018Q2

REPORT INFORMATION
  Report Type: Report from Study
  Country: US (occurrence: US)
  Receive Date: 20180216
  Receipt Date: 20180531
  Transmission Date: 20180711
  Serious: Yes (Death, Hospitalization, Other)
  Sender: FDA-Public Use
  Company Number: US-RETROPHIN, INC.-2018RTN00003

PATIENT
  Sex: Female

DRUGS (2)
  1. CHOLIC ACID [Suspect]
     Active Substance: CHOLIC ACID
     Indication: ADRENOLEUKODYSTROPHY
     Dosage: 50 MG, 2X/DAY
     Dates: start: 20160210
  2. CHOLIC ACID [Suspect]
     Active Substance: CHOLIC ACID
     Indication: BILE DUCT OBSTRUCTION

REACTIONS (9)
  - Haematemesis [Recovered/Resolved]
  - Gastrointestinal haemorrhage [Recovered/Resolved]
  - Vomiting [Recovered/Resolved]
  - Rhinorrhoea [Recovering/Resolving]
  - Sleep apnoea syndrome [Not Recovered/Not Resolved]
  - Gastrointestinal tract irritation [Recovered/Resolved]
  - Disease progression [Fatal]
  - Gastrooesophageal reflux disease [Recovered/Resolved]
  - Tonsillar hypertrophy [Not Recovered/Not Resolved]
